FAERS Safety Report 23695461 (Version 2)
Quarter: 2024Q2

REPORT INFORMATION
  Report Type: Spontaneous
  Country: TR (occurrence: TR)
  Receive Date: 20240402
  Receipt Date: 20240410
  Transmission Date: 20240716
  Serious: Yes (Life-Threatening, Hospitalization, Other)
  Sender: FDA-Public Use
  Company Number: TR-ALKEM LABORATORIES LIMITED-TR-ALKEM-2024-05779

PATIENT
  Age: 16 Year
  Sex: Female

DRUGS (1)
  1. METFORMIN HYDROCHLORIDE [Suspect]
     Active Substance: METFORMIN HYDROCHLORIDE
     Indication: Product used for unknown indication
     Dosage: INGESTED 40 TABLETS 1000 MILLIGRAM
     Route: 065

REACTIONS (8)
  - Suicide attempt [Recovered/Resolved]
  - Vasoplegia syndrome [Recovered/Resolved]
  - Circulatory collapse [Recovered/Resolved]
  - Hyperlactacidaemia [Recovered/Resolved]
  - Lactic acidosis [Recovered/Resolved]
  - Hypotension [Recovered/Resolved]
  - Toxicity to various agents [Recovered/Resolved]
  - Overdose [Unknown]
